FAERS Safety Report 10037703 (Version 2)
Quarter: 2014Q2

REPORT INFORMATION
  Report Type: Spontaneous
  Country: US (occurrence: US)
  Receive Date: 20140326
  Receipt Date: 20140401
  Transmission Date: 20141212
  Serious: No
  Sender: FDA-Public Use
  Company Number: US-PFIZER INC-2014082599

PATIENT
  Age: 38 Year
  Sex: Male
  Weight: 104.31 kg

DRUGS (7)
  1. LYRICA [Suspect]
     Indication: BACK INJURY
     Dosage: 200 MG, 3X/DAY
     Route: 048
     Dates: start: 2013
  2. LYRICA [Suspect]
     Indication: DIABETIC NEPHROPATHY
  3. CELEBREX [Concomitant]
     Indication: PAIN IN EXTREMITY
     Dosage: 200 MG, DAILY
  4. CYCLOBENZAPRINE [Concomitant]
     Indication: ARTHRALGIA
     Dosage: 30 MG, DAILY
  5. CYCLOBENZAPRINE [Concomitant]
     Indication: PAIN IN EXTREMITY
  6. MORPHINE [Concomitant]
     Indication: ARTHRALGIA
     Dosage: 30 MG, DAILY
  7. MORPHINE [Concomitant]
     Indication: PAIN IN EXTREMITY

REACTIONS (7)
  - Drug withdrawal syndrome [Recovered/Resolved]
  - Discomfort [Recovered/Resolved]
  - Spinal pain [Recovered/Resolved]
  - Cold sweat [Recovered/Resolved]
  - Influenza like illness [Recovered/Resolved]
  - Feeling of body temperature change [Recovered/Resolved]
  - Pain [Recovered/Resolved]
